FAERS Safety Report 6443562-5 (Version None)
Quarter: 2009Q4

REPORT INFORMATION
  Report Type: 
  Country: None (occurrence: None)
  Receive Date: 20091112
  Receipt Date: 20091027
  Transmission Date: 20100525
  Serious: Yes (Other)
  Sender: FDA-Public Use
  Company Number: 2009003290

PATIENT
  Age: 55 Year
  Sex: Female

DRUGS (1)
  1. TARCEVA [Suspect]
     Indication: LUNG NEOPLASM MALIGNANT
     Dosage: QD, ORAL
     Route: 048
     Dates: start: 20080901

REACTIONS (5)
  - DERMATITIS [None]
  - DRY SKIN [None]
  - HERPES VIRUS INFECTION [None]
  - SKIN FISSURES [None]
  - SKIN INFECTION [None]
